FAERS Safety Report 7051843 (Version 3)
Quarter: 2018Q1

REPORT INFORMATION
  Report Type: Spontaneous
  Country: US (occurrence: US)
  Receive Date: 20090716
  Receipt Date: 20180315
  Transmission Date: 20180509
  Serious: Yes (Hospitalization, Other)
  Sender: FDA-Public Use
  Company Number: US-ASTRAZENECA-2009UW18857

PATIENT
  Age: 900 Month
  Sex: Male
  Weight: 87.1 kg

DRUGS (4)
  1. BRILINTA [Suspect]
     Active Substance: TICAGRELOR
     Indication: STENT PLACEMENT
     Route: 048
     Dates: start: 201211
  2. CRESTOR [Suspect]
     Active Substance: ROSUVASTATIN CALCIUM
     Route: 048
  3. ASPIRIN. [Concomitant]
     Active Substance: ASPIRIN
     Indication: SUPPLEMENTATION THERAPY
  4. NOVOLIN [Concomitant]
     Active Substance: INSULIN HUMAN
     Indication: DIABETES MELLITUS

REACTIONS (14)
  - Back pain [Not Recovered/Not Resolved]
  - Angina unstable [Unknown]
  - Off label use [Unknown]
  - Muscular weakness [Recovered/Resolved]
  - Influenza like illness [Recovered/Resolved]
  - Glycosylated haemoglobin increased [Unknown]
  - Haemorrhage [Unknown]
  - Angina pectoris [Unknown]
  - Gait disturbance [Recovered/Resolved]
  - Vascular stent thrombosis [Unknown]
  - Malaise [Not Recovered/Not Resolved]
  - Product use issue [Unknown]
  - Prinzmetal angina [Unknown]
  - Cough [Not Recovered/Not Resolved]

NARRATIVE: CASE EVENT DATE: 201708
